FAERS Safety Report 9650694 (Version 2)
Quarter: 2013Q4

REPORT INFORMATION
  Report Type: Spontaneous
  Country: GB (occurrence: GB)
  Receive Date: 20131029
  Receipt Date: 20131119
  Transmission Date: 20140711
  Serious: Yes (Hospitalization)
  Sender: FDA-Public Use
  Company Number: GB-009507513-1310GBR012324

PATIENT
  Sex: 0

DRUGS (3)
  1. JANUVIA [Suspect]
     Route: 048
  2. METFORMIN [Concomitant]
  3. GLICLAZIDE [Concomitant]

REACTIONS (3)
  - Adverse event [Unknown]
  - Blood glucose increased [Unknown]
  - Drug dose omission [Unknown]
